FAERS Safety Report 12605590 (Version 3)
Quarter: 2017Q1

REPORT INFORMATION
  Report Type: Report from Study
  Country: JP (occurrence: JP)
  Receive Date: 20160729
  Receipt Date: 20170323
  Transmission Date: 20170428
  Serious: Yes (Death, Life-Threatening, Hospitalization)
  Sender: FDA-Public Use
  Company Number: JP-ACTELION-A-CH2016-139931

PATIENT
  Age: 78 Year
  Sex: Female

DRUGS (25)
  1. RIOCIGUAT [Suspect]
     Active Substance: RIOCIGUAT
     Dosage: 2 MG, TID
     Route: 048
     Dates: start: 20160411, end: 20160705
  2. APIXABAN [Concomitant]
     Active Substance: APIXABAN
  3. FEBURIC [Concomitant]
     Active Substance: FEBUXOSTAT
  4. SOL-MELCORT [Concomitant]
     Active Substance: METHYLPREDNISOLONE SODIUM SUCCINATE
  5. OPSUMIT [Suspect]
     Active Substance: MACITENTAN
     Indication: PULMONARY ARTERIAL HYPERTENSION
     Dosage: 5 MG, QD
     Route: 048
     Dates: start: 20160527, end: 20160624
  6. RIOCIGUAT [Suspect]
     Active Substance: RIOCIGUAT
     Indication: PULMONARY ARTERIAL HYPERTENSION
     Dosage: 0.5 MG, TID
     Route: 048
     Dates: start: 20160406, end: 20160407
  7. REBAMIPIDE [Concomitant]
     Active Substance: REBAMIPIDE
  8. VALPROATE NA [Concomitant]
     Active Substance: VALPROATE SODIUM
  9. RISPERIDONE. [Concomitant]
     Active Substance: RISPERIDONE
  10. SPIRONOLACTONE. [Concomitant]
     Active Substance: SPIRONOLACTONE
  11. OXYGEN. [Concomitant]
     Active Substance: OXYGEN
  12. ANPLAG [Concomitant]
     Active Substance: SARPOGRELATE
  13. SEROQUEL [Concomitant]
     Active Substance: QUETIAPINE FUMARATE
  14. SARPOGRELATE [Concomitant]
     Active Substance: SARPOGRELATE
  15. AZOSEMIDE [Concomitant]
     Active Substance: AZOSEMIDE
  16. NEXIUM [Concomitant]
     Active Substance: ESOMEPRAZOLE MAGNESIUM
  17. MAINTATE [Concomitant]
     Active Substance: BISOPROLOL FUMARATE
  18. ROZEREM [Concomitant]
     Active Substance: RAMELTEON
  19. DIMEMORFAN PHOSPHATE [Concomitant]
     Active Substance: DIMEMORFAN PHOSPHATE
  20. FERROUS SULFATE. [Concomitant]
     Active Substance: FERROUS SULFATE
  21. MUCOSOLVAN [Concomitant]
     Active Substance: AMBROXOL HYDROCHLORIDE
  22. RIOCIGUAT [Suspect]
     Active Substance: RIOCIGUAT
     Dosage: 1 MG, TID
     Route: 048
     Dates: start: 20160408, end: 20160410
  23. CARBOCISTEINE [Concomitant]
     Active Substance: CARBOCYSTEINE
  24. LANSOPRAZOLE. [Concomitant]
     Active Substance: LANSOPRAZOLE
  25. TRICHLORMETHIAZIDE [Concomitant]
     Active Substance: TRICHLORMETHIAZIDE

REACTIONS (4)
  - Interstitial lung disease [Fatal]
  - Hypercapnia [Fatal]
  - General physical health deterioration [Unknown]
  - Cell marker increased [Fatal]

NARRATIVE: CASE EVENT DATE: 20160527
